FAERS Safety Report 17803668 (Version 1)
Quarter: 2020Q2

REPORT INFORMATION
  Report Type: Spontaneous
  Country: US (occurrence: US)
  Receive Date: 20200519
  Receipt Date: 20200519
  Transmission Date: 20200714
  Serious: Yes (Life-Threatening)
  Sender: FDA-Public Use
  Company Number: None

PATIENT
  Age: 35 Year
  Sex: Female
  Weight: 98.43 kg

DRUGS (5)
  1. AMLODIPINE [Suspect]
     Active Substance: AMLODIPINE BESYLATE
  2. HYDROCHLOROTHIAZIDE. [Suspect]
     Active Substance: HYDROCHLOROTHIAZIDE
  3. DIPRIVAN [Suspect]
     Active Substance: PROPOFOL
  4. IISINOPRIL, 5 MG [Suspect]
     Active Substance: LISINOPRIL
  5. CARVEDILOL. [Suspect]
     Active Substance: CARVEDILOL

REACTIONS (1)
  - Angioedema [None]

NARRATIVE: CASE EVENT DATE: 20200512
